FAERS Safety Report 12093247 (Version 2)
Quarter: 2016Q1

REPORT INFORMATION
  Report Type: Report from Study
  Country: CO (occurrence: CO)
  Receive Date: 20160219
  Receipt Date: 20160322
  Transmission Date: 20160526
  Serious: Yes (Hospitalization, Other)
  Sender: FDA-Public Use
  Company Number: PHHY2015CO157271

PATIENT
  Sex: Female
  Weight: 52 kg

DRUGS (3)
  1. HYDROMORPHONE [Concomitant]
     Active Substance: HYDROMORPHONE
     Indication: PRODUCT USED FOR UNKNOWN INDICATION
     Route: 065
  2. SANDOSTATIN LAR DEPOT [Suspect]
     Active Substance: OCTREOTIDE ACETATE
     Indication: NEUROENDOCRINE TUMOUR
     Dosage: 30 MG, QMO
     Route: 030
     Dates: start: 20110528
  3. SANDOSTATIN LAR DEPOT [Suspect]
     Active Substance: OCTREOTIDE ACETATE
     Indication: ACROMEGALY
     Dosage: 30 MG, QMO
     Route: 030
     Dates: start: 20151125, end: 201512

REACTIONS (20)
  - Urinary tract infection [Unknown]
  - Amnesia [Unknown]
  - Fatigue [Unknown]
  - Pain [Unknown]
  - Decreased appetite [Unknown]
  - Malnutrition [Unknown]
  - Abdominal pain upper [Unknown]
  - Diarrhoea [Unknown]
  - Metastases to stomach [Unknown]
  - Inflammation [Unknown]
  - Dizziness [Unknown]
  - Pyrexia [Unknown]
  - Malabsorption [Unknown]
  - Thyroid hormones increased [Unknown]
  - Apathy [Unknown]
  - Malignant neoplasm progression [Unknown]
  - Weight decreased [Unknown]
  - Nausea [Unknown]
  - General physical health deterioration [Unknown]
  - Viral infection [Unknown]
